FAERS Safety Report 16297658 (Version 1)
Quarter: 2019Q2

REPORT INFORMATION
  Report Type: Spontaneous
  Country: SK (occurrence: SK)
  Receive Date: 20190510
  Receipt Date: 20190510
  Transmission Date: 20190711
  Serious: Yes (Hospitalization, Other)
  Sender: FDA-Public Use
  Company Number: SK-REGENERON PHARMACEUTICALS, INC.-2019-25809

PATIENT

DRUGS (1)
  1. EYLEA [Suspect]
     Active Substance: AFLIBERCEPT
     Indication: NEOVASCULAR AGE-RELATED MACULAR DEGENERATION
     Dosage: OD, TOTAL OF 15 DOSES OF EYLEA, LAST DOSE WAS RECEIVED ON 25-MAR-2019
     Dates: start: 20190326

REACTIONS (4)
  - Blindness [Unknown]
  - Endophthalmitis [Recovering/Resolving]
  - Ocular procedural complication [Unknown]
  - Retinal detachment [Unknown]

NARRATIVE: CASE EVENT DATE: 20190326
